FAERS Safety Report 5929187-6 (Version None)
Quarter: 2008Q4

REPORT INFORMATION
  Report Type: 
  Country: None (occurrence: None)
  Receive Date: 20081023
  Receipt Date: 20081023
  Transmission Date: 20090506
  Serious: Yes (Other)
  Sender: FDA-Public Use
  Company Number: None

PATIENT
  Sex: Female
  Weight: 58 kg

DRUGS (6)
  1. TIZANIDINE HCL [Suspect]
     Indication: MUSCULOSKELETAL STIFFNESS
     Dates: start: 20010201, end: 20070401
  2. ATARAX [Suspect]
     Indication: ANXIETY
     Dates: start: 20020201, end: 20070401
  3. TRANQUIRIT [Concomitant]
  4. ENAPREN [Concomitant]
  5. NORVASC [Concomitant]
  6. RHYTHMONORM [Concomitant]

REACTIONS (5)
  - APHASIA [None]
  - COMMUNICATION DISORDER [None]
  - DRUG INTERACTION [None]
  - NERVOUS SYSTEM DISORDER [None]
  - SPEECH DISORDER [None]
